FAERS Safety Report 24220746 (Version 1)
Quarter: 2024Q3

REPORT INFORMATION
  Report Type: Spontaneous
  Country: US (occurrence: US)
  Receive Date: 20240818
  Receipt Date: 20240818
  Transmission Date: 20241017
  Serious: No
  Sender: BRISTOL MYERS SQUIBB
  Company Number: US-BRISTOL-MYERS SQUIBB COMPANY-2024-130180

PATIENT
  Age: 69 Year
  Sex: Male

DRUGS (3)
  1. ELIQUIS [Suspect]
     Active Substance: APIXABAN
     Indication: Product used for unknown indication
  2. ELIQUIS [Suspect]
     Active Substance: APIXABAN
  3. AXITINIB [Suspect]
     Active Substance: AXITINIB
     Indication: Renal cancer
     Route: 048
     Dates: start: 202407

REACTIONS (2)
  - Epistaxis [Recovering/Resolving]
  - Off label use [Unknown]
